FAERS Safety Report 9354467 (Version 1)
Quarter: 2013Q2

REPORT INFORMATION
  Report Type: Spontaneous
  Country: FR (occurrence: FR)
  Receive Date: 20130618
  Receipt Date: 20130618
  Transmission Date: 20140414
  Serious: Yes (Other)
  Sender: FDA-Public Use
  Company Number: FR-ELI_LILLY_AND_COMPANY-US_000642648

PATIENT
  Age: 53 Year
  Sex: Male

DRUGS (3)
  1. VANCOMYCIN HYDROCHLORIDE [Suspect]
     Indication: STAPHYLOCOCCAL INFECTION
     Dosage: UNK, UNKNOWN
  2. AMIODARONE [Concomitant]
     Dosage: UNK, UNKNOWN
  3. FUROSEMIDE [Concomitant]
     Dosage: UNK, UNKNOWN

REACTIONS (1)
  - Linear IgA disease [Recovered/Resolved]
